FAERS Safety Report 20172524 (Version 1)
Quarter: 2021Q4

REPORT INFORMATION
  Report Type: Report from Study
  Country: US (occurrence: US)
  Receive Date: 20211210
  Receipt Date: 20211210
  Transmission Date: 20220303
  Serious: Yes (Death, Hospitalization, Other)
  Sender: FDA-Public Use
  Company Number: US-ABBVIE-21K-163-4195124-00

PATIENT
  Sex: Female

DRUGS (3)
  1. CREON [Suspect]
     Active Substance: PANCRELIPASE AMYLASE\PANCRELIPASE LIPASE\PANCRELIPASE PROTEASE
     Indication: Pancreatic failure
     Dosage: 3 TO 4 CAPS DAILY
     Route: 048
     Dates: start: 202012
  2. SYNTHROID [Concomitant]
     Active Substance: LEVOTHYROXINE SODIUM
     Indication: Hypothyroidism
  3. TYLENOL [Concomitant]
     Active Substance: ACETAMINOPHEN
     Indication: Product used for unknown indication

REACTIONS (7)
  - Hepatic neoplasm [Fatal]
  - Muscular weakness [Recovered/Resolved]
  - Biliary obstruction [Recovering/Resolving]
  - Jaundice [Recovering/Resolving]
  - Skin mass [Not Recovered/Not Resolved]
  - Pain in extremity [Not Recovered/Not Resolved]
  - Mass [Not Recovered/Not Resolved]

NARRATIVE: CASE EVENT DATE: 20210101
